FAERS Safety Report 12438167 (Version 1)
Quarter: 2016Q2

REPORT INFORMATION
  Report Type: Spontaneous
  Country: US (occurrence: US)
  Receive Date: 20160606
  Receipt Date: 20160606
  Transmission Date: 20160815
  Serious: Yes (Hospitalization)
  Sender: FDA-Public Use
  Company Number: US-BAYER-2016-077947

PATIENT
  Age: 54 Year
  Sex: Female

DRUGS (6)
  1. XARELTO [Interacting]
     Active Substance: RIVAROXABAN
     Indication: EMBOLISM VENOUS
  2. XARELTO [Interacting]
     Active Substance: RIVAROXABAN
     Indication: PORTAL VEIN THROMBOSIS
     Dosage: 15 MG, UNK
     Route: 048
     Dates: start: 20140609, end: 20140624
  3. XARELTO [Interacting]
     Active Substance: RIVAROXABAN
     Indication: DEEP VEIN THROMBOSIS
  4. ACETYLSALICYLIC ACID({=100 MG) [Suspect]
     Active Substance: ASPIRIN
     Indication: PORTAL VEIN THROMBOSIS
     Dosage: 81 MG, UNK
     Route: 065
  5. ACETYLSALICYLIC ACID({=100 MG) [Interacting]
     Active Substance: ASPIRIN
     Indication: MESENTERIC VEIN THROMBOSIS
  6. XARELTO [Interacting]
     Active Substance: RIVAROXABAN
     Indication: MESENTERIC VEIN THROMBOSIS
     Dosage: 20 MG, UNK
     Route: 048
     Dates: start: 20140607, end: 20140609

REACTIONS (1)
  - Gastrointestinal haemorrhage [Recovering/Resolving]

NARRATIVE: CASE EVENT DATE: 20140624
